FAERS Safety Report 9870817 (Version 1)
Quarter: 2014Q1

REPORT INFORMATION
  Report Type: Spontaneous
  Country: SI (occurrence: SI)
  Receive Date: 20140205
  Receipt Date: 20140205
  Transmission Date: 20141002
  Serious: Yes (Other)
  Sender: FDA-Public Use
  Company Number: SI-GLAXOSMITHKLINE-B0963898A

PATIENT
  Sex: Female

DRUGS (3)
  1. FLIXONASE [Suspect]
     Indication: NASAL POLYPS
     Route: 045
     Dates: start: 20100521, end: 20110317
  2. MEDROL [Suspect]
     Indication: NASAL POLYPS
     Dosage: 16MG THREE TIMES PER DAY
     Route: 048
     Dates: start: 20100521, end: 20100528
  3. CORTICOSTEROIDS [Concomitant]

REACTIONS (2)
  - Retinal melanoma [Unknown]
  - Visual impairment [Unknown]
